FAERS Safety Report 5254612-6 (Version None)
Quarter: 2007Q1

REPORT INFORMATION
  Report Type: 
  Country: None (occurrence: None)
  Receive Date: 20070302
  Receipt Date: 20070221
  Transmission Date: 20070707
  Serious: Yes (Other)
  Sender: FDA-Public Use
  Company Number: PFIZER INC-2007014227

PATIENT
  Sex: Male
  Weight: 97.5 kg

DRUGS (5)
  1. LIPITOR [Suspect]
     Indication: BLOOD CHOLESTEROL INCREASED
  2. PREVACID [Concomitant]
  3. EFFEXOR [Concomitant]
  4. POTASSIUM ACETATE [Concomitant]
  5. HYDROCHLOROTHIAZIDE [Concomitant]

REACTIONS (6)
  - DYSKINESIA [None]
  - MUSCULAR WEAKNESS [None]
  - MYALGIA [None]
  - NEURALGIA [None]
  - PHYSICAL DISABILITY [None]
  - SLEEP DISORDER [None]
